FAERS Safety Report 9494196 (Version 4)
Quarter: 2013Q4

REPORT INFORMATION
  Report Type: Spontaneous
  Country: IT (occurrence: IT)
  Receive Date: 20130903
  Receipt Date: 20131024
  Transmission Date: 20140711
  Serious: Yes (Hospitalization)
  Sender: FDA-Public Use
  Company Number: IT-RANBAXY-2013RR-72666

PATIENT
  Age: 22 Year
  Sex: Female

DRUGS (2)
  1. PARACETAMOL [Suspect]
     Indication: EAR INFECTION
     Dosage: 1 DF, SINGLE
     Route: 048
     Dates: start: 20130816, end: 20130816
  2. CLARITHROMYCIN [Suspect]
     Indication: EAR INFECTION
     Dosage: 1 DF, SINGLE
     Route: 048
     Dates: start: 20130816, end: 20130816

REACTIONS (1)
  - Urticaria [Recovering/Resolving]
